FAERS Safety Report 6190457-0 (Version None)
Quarter: 2009Q2

REPORT INFORMATION
  Report Type: 
  Country: None (occurrence: None)
  Receive Date: 20090513
  Receipt Date: 20090513
  Transmission Date: 20091009
  Serious: Yes (Life-Threatening)
  Sender: FDA-Public Use
  Company Number: None

PATIENT
  Age: 47 Year
  Sex: Female
  Weight: 86.1834 kg

DRUGS (1)
  1. GABAPENTIN [Suspect]
     Indication: SCIATICA
     Dosage: 300MG  ONCE DAILY PO
     Route: 048
     Dates: start: 20090427, end: 20090508

REACTIONS (8)
  - AGITATION [None]
  - DEPRESSION [None]
  - HOSTILITY [None]
  - PHOTOSENSITIVITY REACTION [None]
  - PYREXIA [None]
  - RESTLESSNESS [None]
  - SUICIDE ATTEMPT [None]
  - URTICARIA [None]
